FAERS Safety Report 6207360-X (Version None)
Quarter: 2009Q2

REPORT INFORMATION
  Report Type: 
  Country: None (occurrence: None)
  Receive Date: 20090527
  Receipt Date: 20090527
  Transmission Date: 20091009
  Serious: Yes (Other)
  Sender: FDA-Public Use
  Company Number: None

PATIENT
  Age: 53 Year
  Sex: Female
  Weight: 130 kg

DRUGS (2)
  1. ROTHOB. ICE -EYE DROPS- REDNESS RELIEF- PRESERVATIVE FREE ROTHO PHARMA [Suspect]
     Indication: EYE PRURITUS
     Dosage: 1-2 DROPS EACH EYES AS NEEDED OPTHALMIC, JUST ONCE
     Route: 047
     Dates: start: 20090526, end: 20090526
  2. ROTHOB. ICE -EYE DROPS- REDNESS RELIEF- PRESERVATIVE FREE ROTHO PHARMA [Suspect]
     Indication: MULTIPLE ALLERGIES
     Dosage: 1-2 DROPS EACH EYES AS NEEDED OPTHALMIC, JUST ONCE
     Route: 047
     Dates: start: 20090526, end: 20090526

REACTIONS (5)
  - DOCUMENTED HYPERSENSITIVITY TO ADMINISTERED DRUG [None]
  - EYE IRRITATION [None]
  - EYE PAIN [None]
  - HEADACHE [None]
  - REACTION TO DRUG EXCIPIENTS [None]
